FAERS Safety Report 24651277 (Version 1)
Quarter: 2024Q4

REPORT INFORMATION
  Report Type: Spontaneous
  Country: PL (occurrence: PL)
  Receive Date: 20241122
  Receipt Date: 20241122
  Transmission Date: 20250114
  Serious: Yes (Other)
  Sender: ROCHE
  Company Number: PL-ROCHE-10000133705

PATIENT
  Age: 68 Year
  Sex: Female

DRUGS (1)
  1. ATEZOLIZUMAB [Suspect]
     Active Substance: ATEZOLIZUMAB
     Indication: Small cell lung cancer
     Route: 065

REACTIONS (6)
  - Skin disorder [Unknown]
  - Nausea [Unknown]
  - Pruritus [Unknown]
  - Skin exfoliation [Unknown]
  - Rash [Unknown]
  - Rash erythematous [Unknown]
